FAERS Safety Report 5746767-1 (Version None)
Quarter: 2008Q2

REPORT INFORMATION
  Report Type: 
  Country: None (occurrence: None)
  Receive Date: 20080522
  Receipt Date: 20080510
  Transmission Date: 20081010
  Serious: Yes (Life-Threatening, Other)
  Sender: FDA-Public Use
  Company Number: US-PFIZER INC-2007092857

PATIENT
  Sex: Male
  Weight: 105.7 kg

DRUGS (1)
  1. EXUBERA [Suspect]
     Indication: BLOOD GLUCOSE INCREASED

REACTIONS (1)
  - NEOPLASM MALIGNANT [None]
